FAERS Safety Report 11845129 (Version 1)
Quarter: 2015Q4

REPORT INFORMATION
  Report Type: Spontaneous
  Country: CN (occurrence: CN)
  Receive Date: 20151217
  Receipt Date: 20151217
  Transmission Date: 20160305
  Serious: Yes (Other)
  Sender: FDA-Public Use
  Company Number: CN-BAXTER-2015BAX067192

PATIENT
  Age: 1 Month
  Sex: Male
  Weight: 6.5 kg

DRUGS (1)
  1. 20% MANNITOL INJECTION [Suspect]
     Active Substance: MANNITOL
     Indication: INTRACRANIAL PRESSURE INCREASED
     Route: 042
     Dates: start: 20150401, end: 20150401

REACTIONS (3)
  - Rash generalised [Recovered/Resolved]
  - Skin discolouration [Recovered/Resolved]
  - Rash erythematous [Recovered/Resolved]

NARRATIVE: CASE EVENT DATE: 20150401
